FAERS Safety Report 4497857-5 (Version None)
Quarter: 2004Q4

REPORT INFORMATION
  Report Type: 
  Country: None (occurrence: None)
  Receive Date: 20041110
  Receipt Date: 20041102
  Transmission Date: 20050328
  Serious: Yes (Other)
  Sender: FDA-Public Use
  Company Number: GB-GLAXOSMITHKLINE-B0350281A

PATIENT
  Age: 35 Year
  Sex: Female

DRUGS (6)
  1. ONDANSETRON [Suspect]
     Indication: NAUSEA
     Dosage: 4MG PER DAY
     Route: 048
     Dates: start: 20041020, end: 20041021
  2. CO-CODAMOL [Concomitant]
     Indication: PAIN
     Route: 048
     Dates: start: 20041020
  3. IBUPROFEN [Concomitant]
     Indication: PAIN
     Route: 048
     Dates: start: 20041020
  4. MORPHINE [Concomitant]
     Indication: POST PROCEDURAL PAIN
     Route: 042
     Dates: start: 20041019, end: 20041019
  5. INDOMETHACIN [Concomitant]
     Indication: POST PROCEDURAL PAIN
     Route: 054
     Dates: start: 20041019, end: 20041021
  6. DALTEPARIN [Concomitant]
     Indication: DEEP VENOUS THROMBOSIS PROPHYLAXIS
     Dosage: 2500 PER DAY
     Route: 058
     Dates: start: 20041019, end: 20041020

REACTIONS (5)
  - ABNORMAL DREAMS [None]
  - DYSKINESIA [None]
  - FEELING HOT [None]
  - NAUSEA [None]
  - SLEEP DISORDER [None]
